FAERS Safety Report 9419515 (Version 2)
Quarter: 2013Q3

REPORT INFORMATION
  Report Type: Spontaneous
  Country: GB (occurrence: GB)
  Receive Date: 20130725
  Receipt Date: 20130813
  Transmission Date: 20140515
  Serious: Yes (Death, Hospitalization, Other)
  Sender: FDA-Public Use
  Company Number: GB-PFIZER INC-2013212794

PATIENT
  Age: 48 Year
  Sex: Female

DRUGS (13)
  1. ONDANSETRON HCL [Suspect]
     Dosage: 4MG, 3X/DAY WHEN REQUIRED.
     Route: 042
     Dates: start: 20120626
  2. ONDANSETRON [Suspect]
     Dosage: 4 MG, 3X/DAY
     Route: 048
     Dates: start: 20120626
  3. CITALOPRAM [Suspect]
     Dosage: 40 MG, 1X/DAY
     Route: 048
  4. ZOPICLONE [Concomitant]
     Dosage: 7.5-15MG TAKEN AT NIGHT.
     Route: 048
  5. ORAMORPH [Concomitant]
     Dosage: 30MG FOUR TIMES DAILY WHEN REQUIRED
     Route: 048
     Dates: start: 20120626
  6. CHLORPHENAMINE [Concomitant]
     Dosage: 8 MG, 3X/DAY
     Route: 048
  7. CHLORDIAZEPOXIDE [Concomitant]
     Dosage: 10 MG, 2X/DAY
     Route: 050
  8. LEVOTHYROXINE [Concomitant]
     Dosage: 50 UG, 1X/DAY
     Route: 048
  9. OMEPRAZOLE [Concomitant]
     Dosage: 40 MG, 2X/DAY
     Route: 048
  10. PARACETAMOL [Concomitant]
     Dosage: 1 G, 4X/DAY
  11. LOPERAMIDE [Concomitant]
     Dosage: 2-4MG TWICE DAILY.
  12. SALBUTAMOL [Concomitant]
     Dosage: UNK
     Route: 055
  13. BECONASE [Concomitant]
     Dosage: UNK

REACTIONS (12)
  - Torsade de pointes [Fatal]
  - Pulmonary oedema [Not Recovered/Not Resolved]
  - Ischaemia [Not Recovered/Not Resolved]
  - Tremor [Not Recovered/Not Resolved]
  - Vomiting [Not Recovered/Not Resolved]
  - Diarrhoea [Not Recovered/Not Resolved]
  - Psychiatric symptom [Not Recovered/Not Resolved]
  - Hallucination [Not Recovered/Not Resolved]
  - C-reactive protein increased [Not Recovered/Not Resolved]
  - Hypokalaemia [Not Recovered/Not Resolved]
  - Hepatic steatosis [Not Recovered/Not Resolved]
  - Electrolyte imbalance [Not Recovered/Not Resolved]
